FAERS Safety Report 6423364-6 (Version None)
Quarter: 2009Q4

REPORT INFORMATION
  Report Type: 
  Country: None (occurrence: None)
  Receive Date: 20091102
  Receipt Date: 20091027
  Transmission Date: 20100525
  Serious: Yes (Hospitalization)
  Sender: FDA-Public Use
  Company Number: A0683915A

PATIENT
  Age: 57 Year
  Sex: Male

DRUGS (4)
  1. AVANDIA [Suspect]
     Dosage: 8MG PER DAY
     Route: 048
     Dates: start: 20060101, end: 20080101
  2. GLYBURIDE [Concomitant]
  3. METFORMIN HCL [Concomitant]
  4. UNKNOWN BLOOD PRESSURE PILL [Concomitant]

REACTIONS (7)
  - CELLULITIS [None]
  - CHEST PAIN [None]
  - ONYCHOMADESIS [None]
  - PAIN [None]
  - PAIN IN EXTREMITY [None]
  - SKIN ULCER [None]
  - THROMBOSIS [None]
